FAERS Safety Report 25615401 (Version 2)
Quarter: 2025Q3

REPORT INFORMATION
  Report Type: Spontaneous
  Country: US (occurrence: US)
  Receive Date: 20250729
  Receipt Date: 20250731
  Transmission Date: 20251021
  Serious: No
  Sender: ABBVIE
  Company Number: US-ABBVIE-6389922

PATIENT

DRUGS (1)
  1. ELUXADOLINE [Suspect]
     Active Substance: ELUXADOLINE
     Indication: Product used for unknown indication
     Dosage: FORM STRENGTH: 75MG
     Route: 048
     Dates: start: 20250723

REACTIONS (2)
  - Night sweats [Unknown]
  - Product use complaint [Unknown]

NARRATIVE: CASE EVENT DATE: 20250723
